FAERS Safety Report 9990919 (Version 1)
Quarter: 2014Q1

REPORT INFORMATION
  Report Type: Report from Study
  Country: US (occurrence: US)
  Receive Date: 20140310
  Receipt Date: 20140310
  Transmission Date: 20141002
  Serious: No
  Sender: FDA-Public Use
  Company Number: US-ABBVIE-13P-163-1135280-00

PATIENT
  Age: 50 Year
  Sex: Male
  Weight: 151.82 kg

DRUGS (1)
  1. HUMIRA [Suspect]
     Indication: PRODUCT USED FOR UNKNOWN INDICATION
     Route: 058
     Dates: start: 201208, end: 201308

REACTIONS (2)
  - Nodule [Unknown]
  - Urticaria [Unknown]
